FAERS Safety Report 14137068 (Version 2)
Quarter: 2018Q1

REPORT INFORMATION
  Report Type: Report from Study
  Country: US (occurrence: US)
  Receive Date: 20171027
  Receipt Date: 20180123
  Transmission Date: 20180508
  Serious: No
  Sender: FDA-Public Use
  Company Number: US-AMGEN-USASL2017140078

PATIENT
  Age: 63 Year
  Sex: Female
  Weight: 77.55 kg

DRUGS (4)
  1. REPATHA [Suspect]
     Active Substance: EVOLOCUMAB
     Indication: HYPERLIPIDAEMIA
  2. REPATHA [Suspect]
     Active Substance: EVOLOCUMAB
     Indication: HYPERCHOLESTEROLAEMIA
     Dosage: 140 MG, Q2WK
     Route: 058
     Dates: start: 20160421
  3. INDOMETHACIN. [Concomitant]
     Active Substance: INDOMETHACIN
     Dosage: 25 MG, AS NECESSARY
  4. COLCRYS [Concomitant]
     Active Substance: COLCHICINE
     Dosage: 0.6 MG, QD

REACTIONS (5)
  - Blood cholesterol increased [Unknown]
  - Blood uric acid increased [Unknown]
  - Injection site pain [Recovered/Resolved]
  - Gout [Unknown]
  - Blood triglycerides increased [Unknown]

NARRATIVE: CASE EVENT DATE: 20170208
